FAERS Safety Report 10290599 (Version 1)
Quarter: 2014Q3

REPORT INFORMATION
  Report Type: Spontaneous
  Country: US (occurrence: None)
  Receive Date: 20140707
  Receipt Date: 20140707
  Transmission Date: 20150326
  Serious: Yes (Disabling)
  Sender: FDA-Public Use
  Company Number: None

PATIENT
  Age: 37 Year
  Sex: Male
  Weight: 97.52 kg

DRUGS (1)
  1. PROAIR HFA [Suspect]
     Active Substance: ALBUTEROL SULFATE
     Indication: ASTHMA
     Dosage: 2 ACTUATIONS AS NEEDED
     Route: 048

REACTIONS (1)
  - Enuresis [None]

NARRATIVE: CASE EVENT DATE: 20140706
